FAERS Safety Report 8583719-0 (Version None)
Quarter: 2012Q3

REPORT INFORMATION
  Report Type: 
  Country: None (occurrence: None)
  Receive Date: 20120809
  Receipt Date: 20120712
  Transmission Date: 20120928
  Serious: Yes (Hospitalization, Disabling, Other)
  Sender: FDA-Public Use
  Company Number: US-009507513-1102USA02321

PATIENT

DRUGS (11)
  1. FOSAMAX [Suspect]
     Indication: OSTEOPENIA
     Dosage: 70 MG, QW
     Route: 048
     Dates: start: 20000101, end: 20080201
  2. FOSAMAX PLUS D [Suspect]
     Indication: OSTEOPOROSIS
     Route: 048
     Dates: start: 19990401, end: 20100301
  3. FOSAMAX [Suspect]
     Dosage: 70 MG, QW
     Route: 048
     Dates: start: 20080320, end: 20100701
  4. FOSAMAX [Suspect]
  5. ACTONEL [Suspect]
     Dosage: 150 MG, QM
     Route: 048
     Dates: start: 20100701
  6. VITAMIN B COMPLEX CAP [Concomitant]
     Dates: start: 19981101
  7. METICORTEN [Suspect]
     Indication: MYASTHENIA GRAVIS
     Dates: start: 19910101
  8. FOSAMAX [Suspect]
     Indication: OSTEOPOROSIS
     Dosage: 5 MG, QD
     Route: 048
     Dates: start: 19990407, end: 20010713
  9. FOSAMAX [Suspect]
     Dosage: 70 MG, UNK
     Route: 048
     Dates: start: 20080903, end: 20100310
  10. IRON (UNSPECIFIED) [Concomitant]
     Dosage: 30 MG, UNK
     Dates: start: 19980301, end: 20000701
  11. MK-9278 [Concomitant]
     Dates: start: 19981101

REACTIONS (63)
  - DYSPEPSIA [None]
  - TYPE 2 DIABETES MELLITUS [None]
  - CATARACT [None]
  - PAIN [None]
  - ARTHRALGIA [None]
  - RADICULOPATHY [None]
  - ROAD TRAFFIC ACCIDENT [None]
  - FIBROMYALGIA [None]
  - OVERWEIGHT [None]
  - NEUROPATHIC ARTHROPATHY [None]
  - HAEMORRHAGIC ANAEMIA [None]
  - BACK PAIN [None]
  - INTERVERTEBRAL DISC PROTRUSION [None]
  - SCIATICA [None]
  - PAIN IN EXTREMITY [None]
  - FALL [None]
  - HYPERCHOLESTEROLAEMIA [None]
  - DRY EYE [None]
  - DIABETIC NEUROPATHY [None]
  - PLANTAR FASCIAL FIBROMATOSIS [None]
  - FATIGUE [None]
  - PERIPHERAL SENSORY NEUROPATHY [None]
  - HAEMORRHOIDS [None]
  - FEMUR FRACTURE [None]
  - MUSCLE INJURY [None]
  - GASTROENTERITIS VIRAL [None]
  - DEHYDRATION [None]
  - HYPOXIA [None]
  - IRON DEFICIENCY ANAEMIA [None]
  - RHEUMATOID ARTHRITIS [None]
  - PRODUCTIVE COUGH [None]
  - OEDEMA PERIPHERAL [None]
  - RENAL CYST [None]
  - HAEMATOCHEZIA [None]
  - NECK PAIN [None]
  - SLEEP DISORDER [None]
  - TOOTH DISORDER [None]
  - LOW TURNOVER OSTEOPATHY [None]
  - SJOGREN'S SYNDROME [None]
  - GASTROENTERITIS [None]
  - MALAISE [None]
  - BONE FRAGMENTATION [None]
  - JOINT DISLOCATION [None]
  - HYPERTENSION [None]
  - DRY MOUTH [None]
  - DRUG HYPERSENSITIVITY [None]
  - SINUSITIS [None]
  - INTERVERTEBRAL DISC DISORDER [None]
  - DIVERTICULUM INTESTINAL [None]
  - GINGIVAL DISORDER [None]
  - HAEMATOCRIT DECREASED [None]
  - FOOT FRACTURE [None]
  - STRESS FRACTURE [None]
  - MAJOR DEPRESSION [None]
  - GASTROOESOPHAGEAL REFLUX DISEASE [None]
  - HEPATIC STEATOSIS [None]
  - TENDON DISORDER [None]
  - RENAL FAILURE ACUTE [None]
  - BLOOD CREATININE INCREASED [None]
  - PNEUMONIA [None]
  - BURSITIS [None]
  - ANAEMIA [None]
  - PLANTAR FASCIITIS [None]
